FAERS Safety Report 18897227 (Version 1)
Quarter: 2021Q1

REPORT INFORMATION
  Report Type: Other
  Country: TH (occurrence: TH)
  Receive Date: 20210215
  Receipt Date: 20210215
  Transmission Date: 20210420
  Serious: Yes (Hospitalization)
  Sender: FDA-Public Use
  Company Number: TH-B.BRAUN MEDICAL INC.-2106790

PATIENT
  Age: 32 Year
  Sex: Female

DRUGS (5)
  1. ARTESUNATE [Concomitant]
     Active Substance: ARTESUNATE
     Route: 042
  2. 3% AND 5% SODIUM CHLORIDE INJECTIONS USP 0264?7805?10 [Suspect]
     Active Substance: SODIUM CHLORIDE
     Route: 042
  3. CHLOROQUINE. [Concomitant]
     Active Substance: CHLOROQUINE
     Route: 048
  4. CEFTRIAXONE. [Concomitant]
     Active Substance: CEFTRIAXONE
     Route: 042
  5. NOREPINEPHRINE. [Concomitant]
     Active Substance: NOREPINEPHRINE
     Route: 042

REACTIONS (1)
  - Drug ineffective [None]
